FAERS Safety Report 8407023-6 (Version None)
Quarter: 2012Q2

REPORT INFORMATION
  Report Type: 
  Country: None (occurrence: None)
  Receive Date: 20120323
  Receipt Date: 20110526
  Transmission Date: 20120825
  Serious: Yes (Other)
  Sender: FDA-Public Use
  Company Number: 163-21880-11052354

PATIENT
  Age: 56 Year
  Sex: Female

DRUGS (5)
  1. REVLIMID [Suspect]
     Indication: MULTIPLE MYELOMA
     Dosage: 15 MG, 1 IN 1 D, PO 25 MG, 1 IN 1 D, PO 25 MG, DAILY X 21 DAYS, PO
     Route: 048
     Dates: start: 20090401, end: 20090101
  2. REVLIMID [Suspect]
     Indication: MULTIPLE MYELOMA
     Dosage: 15 MG, 1 IN 1 D, PO 25 MG, 1 IN 1 D, PO 25 MG, DAILY X 21 DAYS, PO
     Route: 048
     Dates: start: 20110527
  3. REVLIMID [Suspect]
     Indication: MULTIPLE MYELOMA
     Dosage: 15 MG, 1 IN 1 D, PO 25 MG, 1 IN 1 D, PO 25 MG, DAILY X 21 DAYS, PO
     Route: 048
     Dates: start: 20080101
  4. REVLIMID [Suspect]
     Indication: MULTIPLE MYELOMA
     Dosage: 15 MG, 1 IN 1 D, PO 25 MG, 1 IN 1 D, PO 25 MG, DAILY X 21 DAYS, PO
     Route: 048
     Dates: start: 20090601, end: 20090701
  5. REVLIMID [Suspect]
     Indication: MULTIPLE MYELOMA
     Dosage: 15 MG, 1 IN 1 D, PO 25 MG, 1 IN 1 D, PO 25 MG, DAILY X 21 DAYS, PO
     Route: 048
     Dates: start: 20090701, end: 20110301

REACTIONS (2)
  - CATARACT [None]
  - PLATELET COUNT DECREASED [None]
